FAERS Safety Report 11663448 (Version 1)
Quarter: 2015Q4

REPORT INFORMATION
  Report Type: Spontaneous
  Country: US (occurrence: None)
  Receive Date: 20151026
  Receipt Date: 20151026
  Transmission Date: 20160304
  Serious: No
  Sender: FDA-Public Use
  Company Number: None

PATIENT
  Age: 36 Year
  Sex: Male
  Weight: 107 kg

DRUGS (5)
  1. LIDOCAINE 1% C/ EPINEPHRINE 1% HOSPIRA [Suspect]
     Active Substance: EPINEPHRINE\LIDOCAINE
     Indication: INJECTION
     Dosage: INFILTRATION
     Dates: start: 20151023, end: 20151023
  2. ROCURONIUM [Concomitant]
     Active Substance: ROCURONIUM BROMIDE
  3. FENTANYL. [Concomitant]
     Active Substance: FENTANYL
  4. GENERAL ANESTHESIA [Concomitant]
     Active Substance: UNSPECIFIED INGREDIENT
  5. PROPOFOL. [Concomitant]
     Active Substance: PROPOFOL

REACTIONS (2)
  - Product quality issue [None]
  - Incision site haemorrhage [None]

NARRATIVE: CASE EVENT DATE: 20151023
